FAERS Safety Report 7230434-1 (Version None)
Quarter: 2011Q1

REPORT INFORMATION
  Report Type: 
  Country: None (occurrence: None)
  Receive Date: 20110118
  Receipt Date: 20110110
  Transmission Date: 20110831
  Serious: Yes (Other)
  Sender: FDA-Public Use
  Company Number: ES-ELI_LILLY_AND_COMPANY-ES201101002280

PATIENT
  Sex: Female

DRUGS (3)
  1. DIGOXIN [Concomitant]
     Indication: CARDIAC PACEMAKER INSERTION
  2. ISCOVER [Concomitant]
     Indication: CEREBRAL THROMBOSIS
  3. FORTEO [Suspect]
     Indication: OSTEOPOROSIS
     Dosage: 20 UG, DAILY (1/D)
     Route: 058
     Dates: start: 20090526

REACTIONS (1)
  - DEMENTIA ALZHEIMER'S TYPE [None]
